FAERS Safety Report 4687481-3 (Version None)
Quarter: 2005Q2

REPORT INFORMATION
  Report Type: 
  Country: None (occurrence: None)
  Receive Date: 20050608
  Receipt Date: 20050608
  Transmission Date: 20051028
  Serious: Yes (Other)
  Sender: FDA-Public Use
  Company Number: None

PATIENT
  Age: 35 Year
  Sex: Male
  Weight: 77.1115 kg

DRUGS (1)
  1. KEPPRA [Suspect]
     Indication: PSYCHOTIC DISORDER
     Dosage: 500 MG   2 X DAY   ORAL
     Route: 048
     Dates: start: 20050522, end: 20050604

REACTIONS (6)
  - ANXIETY [None]
  - DELUSION [None]
  - FEAR [None]
  - HALLUCINATION [None]
  - PANIC ATTACK [None]
  - SCHIZOPHRENIFORM DISORDER [None]
